FAERS Safety Report 4393936-1 (Version None)
Quarter: 2004Q3

REPORT INFORMATION
  Report Type: 
  Country: None (occurrence: None)
  Receive Date: 20040702
  Receipt Date: 20040616
  Transmission Date: 20050211
  Serious: Yes (Hospitalization)
  Sender: FDA-Public Use
  Company Number: 237736

PATIENT
  Age: 66 Year
  Sex: Male

DRUGS (1)
  1. MIXTARD 30/70 PENFIL (INSULIN HUMAN) SUSPENSION FOR INJECTION, 100IU/M [Suspect]
     Indication: DIABETES MELLITUS

REACTIONS (1)
  - TRIPLE VESSEL BYPASS GRAFT [None]
